FAERS Safety Report 4709873-6 (Version None)
Quarter: 2005Q3

REPORT INFORMATION
  Report Type: 
  Country: None (occurrence: None)
  Receive Date: 20050708
  Receipt Date: 20050630
  Transmission Date: 20060218
  Serious: Yes (Other)
  Sender: FDA-Public Use
  Company Number: FR-ABBOTT-05P-056-0305016-00

PATIENT
  Sex: Female

DRUGS (7)
  1. DEPAKENE [Suspect]
     Indication: EPILEPSY
     Route: 065
  2. CLOBAZAM [Suspect]
     Indication: DRUG USE FOR UNKNOWN INDICATION
     Route: 065
  3. PHENYTOIN [Suspect]
     Indication: DRUG USE FOR UNKNOWN INDICATION
     Route: 065
  4. PHENOBARBITAL SODIUM 100MG CAP [Suspect]
     Indication: DRUG USE FOR UNKNOWN INDICATION
     Route: 065
  5. TIANEPTINE [Suspect]
     Indication: DRUG USE FOR UNKNOWN INDICATION
     Route: 065
  6. MISOPROSTOL [Suspect]
     Indication: ABORTION
     Route: 065
     Dates: start: 20040301, end: 20040301
  7. MIFEPRISTONE [Suspect]
     Indication: ABORTION
     Route: 065
     Dates: start: 20040301, end: 20040301

REACTIONS (2)
  - INDUCED ABORTION FAILED [None]
  - PREMATURE LABOUR [None]
